FAERS Safety Report 6298654-0 (Version None)
Quarter: 2009Q3

REPORT INFORMATION
  Report Type: 
  Country: None (occurrence: None)
  Receive Date: 20090805
  Receipt Date: 20070906
  Transmission Date: 20100115
  Serious: Yes (Disabling, Other)
  Sender: FDA-Public Use
  Company Number: GB-JNJCH-2009020632

PATIENT
  Age: 42 Year
  Sex: Female
  Weight: 67 kg

DRUGS (5)
  1. BENADRYL ALLERGY RELIEF [Suspect]
     Indication: PRURITUS
     Dosage: TEXT:UNSPECIFIED
     Route: 048
  2. BENADRYL ONE A DAY [Suspect]
     Indication: PRURITUS
     Dosage: TEXT:1DF TOTAL
     Route: 048
  3. PARACETAMOL [Concomitant]
     Indication: DRUG USE FOR UNKNOWN INDICATION
     Dosage: TEXT:UNSPECIFIED AS NECESSARY
     Route: 065
  4. QVAR 40 [Concomitant]
     Indication: DRUG USE FOR UNKNOWN INDICATION
     Dosage: TEXT:UNSPECIFIED
     Route: 055
  5. SEREVENT [Concomitant]
     Indication: DRUG USE FOR UNKNOWN INDICATION
     Dosage: TEXT:UNSPECIFIED
     Route: 055

REACTIONS (2)
  - OEDEMA PERIPHERAL [None]
  - RASH GENERALISED [None]
